FAERS Safety Report 22268647 (Version 1)
Quarter: 2023Q2

REPORT INFORMATION
  Report Type: Spontaneous
  Country: US (occurrence: US)
  Receive Date: 20230501
  Receipt Date: 20230501
  Transmission Date: 20230721
  Serious: Yes (Other)
  Sender: FDA-Public Use
  Company Number: US-ALXN-A202305661

PATIENT
  Age: 31 Year
  Sex: Female

DRUGS (1)
  1. SOLIRIS [Suspect]
     Active Substance: ECULIZUMAB
     Indication: Paroxysmal nocturnal haemoglobinuria
     Dosage: UNK
     Route: 065

REACTIONS (14)
  - Brain death [Unknown]
  - Neutropenic colitis [Unknown]
  - Acute respiratory failure [Unknown]
  - Lactic acidosis [Not Recovered/Not Resolved]
  - Pancytopenia [Not Recovered/Not Resolved]
  - Cardiac arrest [Unknown]
  - Renal failure [Unknown]
  - Hepatic failure [Unknown]
  - Disseminated intravascular coagulation [Unknown]
  - Brain injury [Unknown]
  - Brain oedema [Unknown]
  - Brain herniation [Unknown]
  - Enterococcal sepsis [Unknown]
  - Klebsiella sepsis [Unknown]
